FAERS Safety Report 4849648-0 (Version None)
Quarter: 2005Q4

REPORT INFORMATION
  Report Type: 
  Country: None (occurrence: None)
  Receive Date: 20051115
  Receipt Date: 20050720
  Transmission Date: 20060501
  Serious: No
  Sender: FDA-Public Use
  Company Number: S05-USA-03660-01

PATIENT
  Age: 84 Year
  Sex: Female

DRUGS (8)
  1. NAMENDA [Suspect]
     Indication: AMNESIA
     Dosage: 10 MG BID PO
     Route: 048
     Dates: start: 20050717
  2. NAMENDA [Suspect]
     Indication: AMNESIA
     Dosage: 5 MG QD PO
     Route: 048
     Dates: start: 20050626, end: 20050702
  3. NAMENDA [Suspect]
     Indication: AMNESIA
     Dosage: 5 MG BID PO
     Route: 048
     Dates: start: 20050703, end: 20050709
  4. NAMENDA [Suspect]
     Indication: AMNESIA
     Dosage: 15 MG QD PO
     Route: 048
     Dates: start: 20050710, end: 20050716
  5. METFORMIN [Concomitant]
  6. DIGOXIN [Concomitant]
  7. COUMADIN [Concomitant]
  8. TOPROL-XL [Concomitant]

REACTIONS (1)
  - TINNITUS [None]
